FAERS Safety Report 9375258 (Version 2)
Quarter: 2013Q3

REPORT INFORMATION
  Report Type: Spontaneous
  Country: FR (occurrence: FR)
  Receive Date: 20130628
  Receipt Date: 20130718
  Transmission Date: 20140515
  Serious: Yes (Death, Hospitalization)
  Sender: FDA-Public Use
  Company Number: FR-TEVA-415313ISR

PATIENT
  Age: 81 Year
  Sex: Male

DRUGS (13)
  1. FUROSEMIDE [Suspect]
     Indication: CARDIAC FAILURE
     Dosage: 80 MILLIGRAM DAILY;
     Route: 048
     Dates: start: 20130516, end: 20130608
  2. ATORVASTATIN [Suspect]
     Dosage: 1 DOSAGE FORMS DAILY;
     Route: 048
  3. ALLOPURINOL [Suspect]
     Dosage: 1 DOSAGE FORMS DAILY;
     Route: 048
  4. SPIRONOLACTONE [Suspect]
     Dosage: 1 DOSAGE FORMS DAILY;
     Route: 048
  5. OMEPRAZOLE [Suspect]
     Dosage: 1 DOSAGE FORMS DAILY;
     Route: 048
  6. PAROXETINE HYDROCHLORIDE [Suspect]
     Dosage: 1 DOSAGE FORMS DAILY;
     Route: 048
  7. ALFUZOSINE [Suspect]
     Dosage: 1 DOSAGE FORMS DAILY;
     Route: 048
  8. ZOLPIDEM [Suspect]
     Dosage: 1 DOSAGE FORMS DAILY;
     Route: 048
  9. PARACETAMOL [Suspect]
     Dosage: 3 GRAM DAILY;
     Route: 048
  10. IRBESARTAN [Suspect]
     Dosage: 75 MILLIGRAM DAILY;
     Route: 048
  11. DIFFU K [Suspect]
     Dosage: 2 DOSAGE FORMS DAILY;
     Route: 048
  12. NOVOMIX [Suspect]
     Indication: DIABETES MELLITUS
     Route: 058
  13. DICLOFENAC TEVA 1% GEL CUTANEOUS APPLICATION [Concomitant]
     Route: 003

REACTIONS (4)
  - Pulmonary oedema [Fatal]
  - Cardiac failure [Fatal]
  - Blood creatinine increased [Unknown]
  - Fall [Unknown]
